FAERS Safety Report 12978928 (Version 1)
Quarter: 2016Q4

REPORT INFORMATION
  Report Type: Spontaneous
  Country: US (occurrence: US)
  Receive Date: 20161125
  Receipt Date: 20161125
  Transmission Date: 20170207
  Serious: No
  Sender: FDA-Public Use
  Company Number: None

PATIENT
  Age: 69 Year
  Sex: Male

DRUGS (5)
  1. CAPECITABINE TAB 500MG [Suspect]
     Active Substance: CAPECITABINE
     Indication: COLON CANCER
     Route: 048
     Dates: start: 20160925
  2. CAPECITABINE TAB 500MG [Suspect]
     Active Substance: CAPECITABINE
     Indication: PAIN
     Route: 048
     Dates: start: 20160925
  3. CAPECITABINE TAB 500MG [Suspect]
     Active Substance: CAPECITABINE
     Indication: DYSPEPSIA
     Route: 048
     Dates: start: 20160925
  4. CAPECITABINE TAB 500MG [Suspect]
     Active Substance: CAPECITABINE
     Indication: ESSENTIAL HYPERTENSION
     Route: 048
     Dates: start: 20160925
  5. CAPECITABINE TAB 500MG [Suspect]
     Active Substance: CAPECITABINE
     Indication: GASTROOESOPHAGEAL REFLUX DISEASE
     Route: 048
     Dates: start: 20160925

REACTIONS (3)
  - Night sweats [None]
  - Decreased appetite [None]
  - Muscle spasms [None]

NARRATIVE: CASE EVENT DATE: 20160925
